FAERS Safety Report 8314888-5 (Version None)
Quarter: 2012Q1

REPORT INFORMATION
  Report Type: 
  Country: None (occurrence: None)
  Receive Date: 20120315
  Receipt Date: 20110525
  Transmission Date: 20120608
  Serious: Yes (Other)
  Sender: FDA-Public Use
  Company Number: PHHY2011US45435

PATIENT
  Age: 53 Year
  Sex: Female

DRUGS (3)
  1. MAXZIDE [Concomitant]
  2. SYNTHROID [Concomitant]
  3. GILENYA [Suspect]
     Indication: MULTIPLE SCLEROSIS
     Dosage: 0.5 MG, DAILY, ORAL
     Route: 048
     Dates: start: 20110201

REACTIONS (1)
  - BRONCHITIS [None]
